FAERS Safety Report 18751682 (Version 4)
Quarter: 2021Q2

REPORT INFORMATION
  Report Type: Report from Study
  Country: US (occurrence: US)
  Receive Date: 20210118
  Receipt Date: 20210621
  Transmission Date: 20210717
  Serious: Yes (Other)
  Sender: FDA-Public Use
  Company Number: NVSC2021US010234

PATIENT
  Sex: Male

DRUGS (1)
  1. KESIMPTA [Suspect]
     Active Substance: OFATUMUMAB
     Indication: MULTIPLE SCLEROSIS
     Dosage: UNK (BENEATH THE SKIN VIA INJECTION)
     Route: 058

REACTIONS (4)
  - Secondary progressive multiple sclerosis [Unknown]
  - Multiple sclerosis relapse [Unknown]
  - Off label use [Unknown]
  - Gait disturbance [Unknown]
